FAERS Safety Report 18104708 (Version 2)
Quarter: 2020Q3

REPORT INFORMATION
  Report Type: Report from Study
  Country: DE (occurrence: DE)
  Receive Date: 20200804
  Receipt Date: 20200901
  Transmission Date: 20201103
  Serious: Yes (Death, Hospitalization)
  Sender: FDA-Public Use
  Company Number: DE-BEH-2020120319

PATIENT
  Age: 77 Year
  Sex: Female
  Weight: 51 kg

DRUGS (22)
  1. PRIVIGEN [Suspect]
     Active Substance: HUMAN IMMUNOGLOBULIN G
     Dosage: 20 GRAM, TOT
     Route: 042
     Dates: start: 20191210, end: 20191210
  2. MACROGOL [Concomitant]
     Active Substance: POLYETHYLENE GLYCOLS
  3. LENALIDOMIDE [Concomitant]
     Active Substance: LENALIDOMIDE
  4. OXYCODONE [Concomitant]
     Active Substance: OXYCODONE
  5. DEKRISTOL [Concomitant]
     Active Substance: CHOLECALCIFEROL
  6. MIRTAZAPINE. [Concomitant]
     Active Substance: MIRTAZAPINE
  7. CLEXANE [Concomitant]
     Active Substance: ENOXAPARIN SODIUM
  8. CALCIUM [Concomitant]
     Active Substance: CALCIUM
  9. NEPHROTRANS [Concomitant]
     Active Substance: SODIUM BICARBONATE
  10. LAXOBERAL [Concomitant]
     Active Substance: SODIUM PICOSULFATE
  11. PRIVIGEN [Suspect]
     Active Substance: HUMAN IMMUNOGLOBULIN G
     Indication: INFECTION
     Dosage: 20 GRAM, TOT
     Route: 042
     Dates: start: 20191105, end: 20191105
  12. PRIVIGEN [Suspect]
     Active Substance: HUMAN IMMUNOGLOBULIN G
     Dosage: 20 GRAM, TOT
     Route: 042
     Dates: start: 20200107, end: 20200107
  13. ONDANSETRON [Concomitant]
     Active Substance: ONDANSETRON
  14. PRIVIGEN [Suspect]
     Active Substance: HUMAN IMMUNOGLOBULIN G
     Indication: SECONDARY IMMUNODEFICIENCY
     Dosage: 20 GRAM, TOT
     Route: 042
     Dates: start: 20190926, end: 20190926
  15. METAMIZOLE [Concomitant]
     Active Substance: METAMIZOLE
  16. ELOTUZUMAB. [Concomitant]
     Active Substance: ELOTUZUMAB
  17. LONQUEX [Concomitant]
     Active Substance: LIPEGFILGRASTIM
  18. PANTOPRAZOLE [Concomitant]
     Active Substance: PANTOPRAZOLE
  19. PRIVIGEN [Suspect]
     Active Substance: HUMAN IMMUNOGLOBULIN G
     Indication: PLASMACYTOMA
     Dosage: 20 GRAM, TOT
     Route: 042
     Dates: start: 20190903, end: 20190903
  20. PRIVIGEN [Suspect]
     Active Substance: HUMAN IMMUNOGLOBULIN G
     Dosage: 20 GRAM, TOT
     Route: 042
     Dates: start: 20191112, end: 20191112
  21. PRIVIGEN [Suspect]
     Active Substance: HUMAN IMMUNOGLOBULIN G
     Dosage: 20 GRAM, TOT
     Route: 042
     Dates: start: 20200219, end: 20200219
  22. OXYGESIC AKUT [Concomitant]
     Active Substance: OXYCODONE

REACTIONS (5)
  - Febrile infection [Recovered/Resolved]
  - Pelvic pain [Fatal]
  - Pain in extremity [Fatal]
  - Plasmacytoma [Fatal]
  - Plasma cell myeloma [Fatal]

NARRATIVE: CASE EVENT DATE: 202002
